FAERS Safety Report 19171821 (Version 1)
Quarter: 2021Q2

REPORT INFORMATION
  Report Type: Spontaneous
  Country: US (occurrence: US)
  Receive Date: 20210422
  Receipt Date: 20210422
  Transmission Date: 20210717
  Serious: Yes (Hospitalization)
  Sender: FDA-Public Use
  Company Number: None

PATIENT
  Age: 70 Year
  Sex: Female
  Weight: 90.8 kg

DRUGS (1)
  1. DOXIL [Suspect]
     Active Substance: DOXORUBICIN HYDROCHLORIDE
     Dates: end: 20210120

REACTIONS (8)
  - Gastrointestinal haemorrhage [None]
  - Gastric antral vascular ectasia [None]
  - Malignant neoplasm progression [None]
  - Atrial fibrillation [None]
  - Atrial flutter [None]
  - Pulmonary embolism [None]
  - Blood loss anaemia [None]
  - Therapy cessation [None]

NARRATIVE: CASE EVENT DATE: 20210215
